FAERS Safety Report 16688994 (Version 1)
Quarter: 2019Q3

REPORT INFORMATION
  Report Type: Spontaneous
  Country: US (occurrence: US)
  Receive Date: 20190809
  Receipt Date: 20190809
  Transmission Date: 20191004
  Serious: Yes (Other)
  Sender: FDA-Public Use
  Company Number: US-BAYER-2019-144721

PATIENT
  Age: 14 Year
  Sex: Female

DRUGS (2)
  1. ENOXAPARIN [Suspect]
     Active Substance: ENOXAPARIN
  2. ACETYLSALICYLIC ACID (CARDIO) [Suspect]
     Active Substance: ASPIRIN
     Indication: CEREBRAL ISCHAEMIA
     Dosage: UNK

REACTIONS (4)
  - Off label use [None]
  - Labelled drug-drug interaction medication error [None]
  - Product administered to patient of inappropriate age [None]
  - Subdural haematoma [None]
